FAERS Safety Report 10603245 (Version 1)
Quarter: 2014Q4

REPORT INFORMATION
  Report Type: Spontaneous
  Country: US (occurrence: US)
  Receive Date: 20141124
  Receipt Date: 20141124
  Transmission Date: 20150529
  Serious: Yes (Hospitalization)
  Sender: FDA-Public Use
  Company Number: US-ACTELION-A-US2014-103557

PATIENT
  Age: 29 Year
  Sex: Female

DRUGS (2)
  1. VELETRI [Suspect]
     Active Substance: EPOPROSTENOL
     Indication: PULMONARY ARTERIAL HYPERTENSION
     Dosage: 50.31 NG/KG, PER MIN
     Route: 042
     Dates: start: 20110612
  2. COUMADIN [Concomitant]
     Active Substance: WARFARIN SODIUM

REACTIONS (10)
  - Catheter site discharge [Recovered/Resolved]
  - Device leakage [Unknown]
  - Device connection issue [Unknown]
  - Device breakage [Unknown]
  - Catheter site pain [Unknown]
  - Device related infection [Recovered/Resolved]
  - Device dislocation [Unknown]
  - Flushing [Unknown]
  - Dyspnoea [Unknown]
  - Abscess [Unknown]

NARRATIVE: CASE EVENT DATE: 20140803
